FAERS Safety Report 4637517-0 (Version None)
Quarter: 2005Q2

REPORT INFORMATION
  Report Type: 
  Country: None (occurrence: None)
  Receive Date: 20050418
  Receipt Date: 20050405
  Transmission Date: 20051028
  Serious: Yes (Death)
  Sender: FDA-Public Use
  Company Number: US-JNJFOC-20041203031

PATIENT
  Sex: Female

DRUGS (30)
  1. REMINYL [Suspect]
     Route: 049
  2. DARVOCET [Concomitant]
     Route: 065
  3. DARVOCET [Concomitant]
     Route: 065
  4. IMODIUM [Concomitant]
     Dosage: AS NEEDED
     Route: 065
  5. MULTI-VITAMIN [Concomitant]
     Route: 065
  6. MULTI-VITAMIN [Concomitant]
     Route: 065
  7. MULTI-VITAMIN [Concomitant]
     Route: 065
  8. MULTI-VITAMIN [Concomitant]
     Route: 065
  9. MULTI-VITAMIN [Concomitant]
     Route: 065
  10. MULTI-VITAMIN [Concomitant]
     Route: 065
  11. MULTI-VITAMIN [Concomitant]
     Route: 065
  12. MULTI-VITAMIN [Concomitant]
     Route: 065
  13. CALCIUM GLUCONATE [Concomitant]
     Route: 065
  14. MAGNESIUM [Concomitant]
     Route: 065
  15. ZINC [Concomitant]
     Route: 065
  16. VITAMIN C [Concomitant]
     Route: 065
  17. ADVIL COLD AND SINUS [Concomitant]
     Route: 065
  18. ADVIL COLD AND SINUS [Concomitant]
     Route: 065
  19. BEXTRA [Concomitant]
     Route: 065
  20. BOWEL STOOL SOFTNER [Concomitant]
     Route: 065
  21. ZOLOFT [Concomitant]
     Route: 065
  22. ZOLOFT [Concomitant]
     Route: 065
  23. NEXIUM [Concomitant]
     Route: 065
  24. FOSAMAX [Concomitant]
     Route: 065
  25. METHOTREXATE [Concomitant]
     Route: 065
  26. PREDNISONE [Concomitant]
     Route: 065
  27. DETROL LA [Concomitant]
     Route: 065
  28. DITROPAN XL [Concomitant]
     Route: 065
  29. FOLIC ACID [Concomitant]
     Route: 065
  30. REMICADE [Concomitant]
     Route: 065

REACTIONS (2)
  - DEHYDRATION [None]
  - RESPIRATORY DISORDER [None]
